FAERS Safety Report 4308920-3 (Version None)
Quarter: 2004Q1

REPORT INFORMATION
  Report Type: 
  Country: None (occurrence: None)
  Receive Date: 20040227
  Receipt Date: 20040220
  Transmission Date: 20041129
  Serious: Yes (Hospitalization)
  Sender: FDA-Public Use
  Company Number: FR-JNJFOC-2004025100

PATIENT
  Age: 52 Year
  Sex: Female
  Weight: 85 kg

DRUGS (6)
  1. REMICADE [Suspect]
     Indication: CROHN'S DISEASE
     Dosage: 435 MG, SUBCUTANEOUS
     Route: 058
     Dates: start: 20020310, end: 20020910
  2. PENTASA (SUSPENSION) MESALAZINE [Concomitant]
  3. FIVASA  (ALL OTHER THERAPEUTIC PRODUCTS) [Concomitant]
  4. INEXIUM (ESOMEPRAZOLE) [Concomitant]
  5. CACIT VITAMINE D2 (CACIT) [Concomitant]
  6. COTANCYL (PREDNISONE) [Concomitant]

REACTIONS (4)
  - BONE DISORDER [None]
  - C-REACTIVE PROTEIN INCREASED [None]
  - PARESIS [None]
  - SYSTEMIC INFLAMMATORY RESPONSE SYNDROME [None]
